FAERS Safety Report 14930717 (Version 2)
Quarter: 2018Q2

REPORT INFORMATION
  Report Type: Spontaneous
  Country: US (occurrence: US)
  Receive Date: 20180523
  Receipt Date: 20180614
  Transmission Date: 20180711
  Serious: Yes (Other)
  Sender: FDA-Public Use
  Company Number: US-ASTRAZENECA-2018SE67573

PATIENT
  Age: 748 Month
  Sex: Female

DRUGS (1)
  1. TUDORZA PRESSAIR [Suspect]
     Active Substance: ACLIDINIUM BROMIDE
     Route: 055

REACTIONS (6)
  - Circumstance or information capable of leading to medication error [Not Recovered/Not Resolved]
  - Intentional product misuse [Recovered/Resolved]
  - Cerebrovascular accident [Unknown]
  - Chronic obstructive pulmonary disease [Not Recovered/Not Resolved]
  - Device malfunction [Unknown]
  - Asthma [Not Recovered/Not Resolved]

NARRATIVE: CASE EVENT DATE: 201805
